FAERS Safety Report 8589673-X (Version None)
Quarter: 2012Q3

REPORT INFORMATION
  Report Type: 
  Country: None (occurrence: None)
  Receive Date: 20120813
  Receipt Date: 20120807
  Transmission Date: 20120928
  Serious: Yes (Other)
  Sender: FDA-Public Use
  Company Number: CA-ASTRAZENECA-2012SE55648

PATIENT
  Age: 68 Year
  Sex: Male

DRUGS (8)
  1. ASPIRIN [Concomitant]
     Route: 048
  2. HUMULIN R [Concomitant]
     Route: 042
  3. METFORMIN HYDROCHLORIDE [Concomitant]
     Route: 048
  4. ATORVASTATIN [Concomitant]
     Route: 048
  5. SYMBICORT [Suspect]
     Indication: ASTHMA
     Dosage: TWO INHALATIONS, TWO TIMES A DAY
     Route: 055
     Dates: start: 20070101
  6. BRICANYL [Concomitant]
     Route: 048
  7. DIAMICRON [Concomitant]
     Route: 048
  8. SYMBICORT [Suspect]
     Dosage: OCCASIONALLY UP TO FOUR TIMES A DAY
     Route: 055

REACTIONS (4)
  - DYSPNOEA [None]
  - PALATAL OEDEMA [None]
  - HYPERSENSITIVITY [None]
  - THROAT TIGHTNESS [None]
